FAERS Safety Report 19695382 (Version 1)
Quarter: 2021Q3

REPORT INFORMATION
  Report Type: Spontaneous
  Country: US (occurrence: US)
  Receive Date: 20210813
  Receipt Date: 20210813
  Transmission Date: 20211014
  Serious: Yes (Disabling, Other)
  Sender: FDA-Public Use
  Company Number: US-BTGSP-US-BTGSP-21-0099

PATIENT
  Sex: Male

DRUGS (1)
  1. CROFAB [Suspect]
     Active Substance: CROTALIDAE POLYVALENT IMMUNE FAB (OVINE)
     Indication: SNAKE BITE
     Dosage: 3 X 10 VIALS
     Route: 065

REACTIONS (5)
  - Swelling [Unknown]
  - Depressed mood [Unknown]
  - Finger amputation [Unknown]
  - Off label use [Unknown]
  - Infection [Unknown]
